FAERS Safety Report 10974683 (Version 1)
Quarter: 2015Q2

REPORT INFORMATION
  Report Type: Spontaneous
  Country: PT (occurrence: PT)
  Receive Date: 20150401
  Receipt Date: 20150401
  Transmission Date: 20150821
  Serious: Yes (Hospitalization, Other)
  Sender: FDA-Public Use
  Company Number: US-ASTRAZENECA-2015SE19892

PATIENT
  Age: 17 Month
  Sex: Female
  Weight: 9.2 kg

DRUGS (6)
  1. SYNAGIS [Suspect]
     Active Substance: PALIVIZUMAB
     Indication: HEART DISEASE CONGENITAL
     Route: 030
     Dates: start: 2013, end: 2014
  2. SYNAGIS [Suspect]
     Active Substance: PALIVIZUMAB
     Indication: CONGENITAL DIAPHRAGMATIC HERNIA
     Route: 030
     Dates: start: 2013, end: 2014
  3. SYNAGIS [Suspect]
     Active Substance: PALIVIZUMAB
     Indication: CONGENITAL DIAPHRAGMATIC HERNIA
     Route: 030
     Dates: start: 20141001, end: 20141001
  4. SYNAGIS [Suspect]
     Active Substance: PALIVIZUMAB
     Indication: HEART DISEASE CONGENITAL
     Route: 030
     Dates: start: 20141001, end: 20141001
  5. SYNAGIS [Suspect]
     Active Substance: PALIVIZUMAB
     Indication: CONGENITAL DIAPHRAGMATIC HERNIA
     Route: 030
     Dates: start: 20141119, end: 20141119
  6. SYNAGIS [Suspect]
     Active Substance: PALIVIZUMAB
     Indication: HEART DISEASE CONGENITAL
     Route: 030
     Dates: start: 20141119, end: 20141119

REACTIONS (3)
  - Respiratory syncytial virus infection [Recovered/Resolved]
  - Respiratory distress [Recovered/Resolved]
  - Respiratory tract infection [Unknown]

NARRATIVE: CASE EVENT DATE: 201412
